FAERS Safety Report 7805177-3 (Version None)
Quarter: 2011Q4

REPORT INFORMATION
  Report Type: 
  Country: None (occurrence: None)
  Receive Date: 20111010
  Receipt Date: 20110930
  Transmission Date: 20120403
  Serious: Yes (Hospitalization)
  Sender: FDA-Public Use
  Company Number: PHHY2011ES87281

PATIENT
  Age: 63 Year
  Sex: Male

DRUGS (3)
  1. TACROLIMUS [Concomitant]
  2. PREDNISONE [Suspect]
     Indication: OVERLAP SYNDROME
     Dosage: 60 MG, UNK
  3. AZATHIOPRINE [Concomitant]

REACTIONS (3)
  - DYSPNOEA [None]
  - RESPIRATORY FAILURE [None]
  - LIPOMATOSIS [None]
